FAERS Safety Report 5337076-3 (Version None)
Quarter: 2007Q2

REPORT INFORMATION
  Report Type: 
  Country: None (occurrence: None)
  Receive Date: 20070529
  Receipt Date: 20070525
  Transmission Date: 20071010
  Serious: Yes (Other)
  Sender: FDA-Public Use
  Company Number: US-BRISTOL-MYERS SQUIBB COMPANY-13789177

PATIENT
  Age: 91 Year
  Sex: Female

DRUGS (3)
  1. CAPTOPRIL [Suspect]
     Indication: CARDIAC FAILURE CONGESTIVE
  2. WARFARIN SODIUM [Suspect]
  3. HEPARIN [Suspect]

REACTIONS (1)
  - HAEMOLYTIC ANAEMIA [None]
